FAERS Safety Report 5306880-X (Version None)
Quarter: 2007Q2

REPORT INFORMATION
  Report Type: 
  Country: None (occurrence: None)
  Receive Date: 20070425
  Receipt Date: 20070416
  Transmission Date: 20071010
  Serious: Yes (Life-Threatening, Hospitalization)
  Sender: FDA-Public Use
  Company Number: PHBS2007BR06705

PATIENT
  Sex: Female
  Weight: 38 kg

DRUGS (9)
  1. SANDIMMUNE [Suspect]
     Indication: LIVER TRANSPLANT
     Dosage: 125 MG, BID
     Route: 048
  2. SANDIMMUNE [Suspect]
     Dosage: 100 MG, BID
     Route: 048
  3. MYFORTIC [Concomitant]
     Indication: LIVER OPERATION
     Dosage: 2 TABLETS/DAY
     Route: 048
  4. URSACOL [Concomitant]
     Dosage: 3 TABLETS MORNING, 2 TABLETS AT NIGHT
     Route: 048
  5. HYDROXYZINE [Concomitant]
     Indication: PRURITUS
     Dosage: 1 TABLET/DAY
     Route: 048
  6. ATENOLOL [Concomitant]
     Indication: HYPERTENSION
     Dosage: 2 TABLETS/DAY
     Route: 048
  7. OMEPRAZOLE [Concomitant]
     Dosage: 2 TABLETS/DAY
     Route: 048
  8. AMLODIPINE [Concomitant]
     Indication: HYPERTENSION
     Dosage: 2 TABLETS/DAY
     Route: 048
  9. SORCAL [Concomitant]
     Dosage: 1 TABLET/DAY
     Route: 048

REACTIONS (6)
  - BILIARY TRACT OPERATION [None]
  - DYSURIA [None]
  - IMMUNODEFICIENCY [None]
  - RENAL DISORDER [None]
  - VIRAL INFECTION [None]
  - WHITE BLOOD CELL DISORDER [None]
